FAERS Safety Report 26186283 (Version 1)
Quarter: 2025Q4

REPORT INFORMATION
  Report Type: Spontaneous
  Country: US (occurrence: None)
  Receive Date: 20251221
  Receipt Date: 20251221
  Transmission Date: 20260117
  Serious: Yes (Other)
  Sender: FDA-CTU
  Company Number: None

PATIENT
  Age: 28 Year
  Sex: Female
  Weight: 63 kg

DRUGS (1)
  1. CANNABINOL\HERBALS [Suspect]
     Active Substance: CANNABINOL\HERBALS
     Indication: Anxiety
     Dosage: OTHER QUANTITY : 1 1;?FREQUENCY : TWICE A DAY;
     Route: 048
     Dates: end: 20251124

REACTIONS (4)
  - Photopsia [None]
  - Vitreous floaters [None]
  - Product complaint [None]
  - Product formulation issue [None]

NARRATIVE: CASE EVENT DATE: 20251001
